FAERS Safety Report 21781844 (Version 2)
Quarter: 2023Q1

REPORT INFORMATION
  Report Type: Spontaneous
  Country: DE (occurrence: DE)
  Receive Date: 20221227
  Receipt Date: 20230113
  Transmission Date: 20230417
  Serious: Yes (Other)
  Sender: FDA-Public Use
  Company Number: None

PATIENT
  Age: 1 Day
  Sex: Female
  Weight: 2.25 kg

DRUGS (1)
  1. KEPPRA [Suspect]
     Active Substance: LEVETIRACETAM
     Indication: Generalised tonic-clonic seizure
     Dosage: 5000 [MG/D ]/ INITIAL 4000MG DAILY, DOSAGE INCREASED TO 5000MG DAILY FROM WEEK 21
     Dates: start: 20201217, end: 20210921

REACTIONS (3)
  - Small for dates baby [Not Recovered/Not Resolved]
  - Low birth weight baby [Unknown]
  - Foetal exposure during pregnancy [Unknown]

NARRATIVE: CASE EVENT DATE: 20210901
